FAERS Safety Report 25462240 (Version 1)
Quarter: 2025Q2

REPORT INFORMATION
  Report Type: Spontaneous
  Country: US (occurrence: US)
  Receive Date: 20250620
  Receipt Date: 20250620
  Transmission Date: 20250717
  Serious: No
  Sender: AMARIN
  Company Number: US-Amarin Pharma  Inc-2025AMR000373

PATIENT
  Age: 71 Year
  Sex: Male

DRUGS (3)
  1. VASCEPA [Suspect]
     Active Substance: ICOSAPENT ETHYL
     Indication: Cardiovascular event prophylaxis
     Dates: start: 2021
  2. VASCEPA [Suspect]
     Active Substance: ICOSAPENT ETHYL
  3. REPATHA [Concomitant]
     Active Substance: EVOLOCUMAB
     Indication: Product used for unknown indication
     Dosage: TAKES EVERY OTHER WEEK

REACTIONS (5)
  - Abdominal discomfort [Unknown]
  - Off label use [Unknown]
  - Poor quality product administered [Unknown]
  - Product odour abnormal [Unknown]
  - Product physical issue [Unknown]

NARRATIVE: CASE EVENT DATE: 20210101
